FAERS Safety Report 9671787 (Version 3)
Quarter: 2013Q4

REPORT INFORMATION
  Report Type: Report from Study
  Country: CA (occurrence: CA)
  Receive Date: 20131106
  Receipt Date: 20131115
  Transmission Date: 20140711
  Serious: Yes (Death, Hospitalization, Other)
  Sender: FDA-Public Use
  Company Number: PHMT2006CA01769

PATIENT
  Age: 58 Year
  Sex: Male

DRUGS (8)
  1. CLOZARIL [Suspect]
     Indication: PSYCHOTIC DISORDER
     Dosage: 25 MG, QHS
     Route: 048
     Dates: start: 20060810, end: 20060814
  2. CLOZARIL [Suspect]
     Indication: SCHIZOPHRENIA
     Dosage: 50 MG, QD
     Route: 048
     Dates: start: 20060815, end: 20060820
  3. CLOZARIL [Suspect]
     Dosage: 75 MG, QD
     Route: 048
     Dates: start: 20060821, end: 20060823
  4. CLOZARIL [Suspect]
     Dosage: 100 MG, QD
  5. QUETIAPINE [Concomitant]
     Dosage: UNK UKN, UNK
     Route: 048
  6. METHOTRIMEPRAZINE [Concomitant]
     Dosage: UNK UKN, UNK
  7. DOCUSATE SODIUM [Concomitant]
     Dosage: UNK UKN, UNK
     Route: 048
  8. LEVODOPA-CARBIDOPA [Concomitant]
     Dosage: UNK UKN, UNK
     Route: 048

REACTIONS (3)
  - Myocarditis [Fatal]
  - Circulatory collapse [Fatal]
  - Cardiac failure [Fatal]
